FAERS Safety Report 4811720-9 (Version None)
Quarter: 2005Q4

REPORT INFORMATION
  Report Type: 
  Country: None (occurrence: None)
  Receive Date: 20051025
  Receipt Date: 20051010
  Transmission Date: 20060501
  Serious: Yes (Other)
  Sender: FDA-Public Use
  Company Number: 200510624BNE

PATIENT
  Age: 48 Year
  Sex: Male

DRUGS (9)
  1. LEVITRA [Suspect]
     Indication: ERECTILE DYSFUNCTION
     Dosage: SEE IMAGE
  2. SYNACTHEN DEPOT [Concomitant]
  3. MELOXICAM [Concomitant]
  4. ACETAMINOPHEN [Concomitant]
  5. LATANOPROST [Concomitant]
  6. ACETAZOLAMIDE [Concomitant]
  7. RANITIDINE [Concomitant]
  8. AZOPT [Concomitant]
  9. ORTISAN FRUIT CUBES [Concomitant]

REACTIONS (3)
  - CONDITION AGGRAVATED [None]
  - DYSSTASIA [None]
  - JUVENILE ARTHRITIS [None]
